FAERS Safety Report 11980757 (Version 3)
Quarter: 2019Q3

REPORT INFORMATION
  Report Type: Spontaneous
  Country: JP (occurrence: JP)
  Receive Date: 20160129
  Receipt Date: 20190809
  Transmission Date: 20191004
  Serious: Yes (Other)
  Sender: FDA-Public Use
  Company Number: JP-MALLINCKRODT-T201502120

PATIENT
  Age: 46 Year
  Sex: Male
  Weight: 55 kg

DRUGS (19)
  1. METHADONE [Suspect]
     Active Substance: METHADONE HYDROCHLORIDE
     Dosage: 10 MG, (30 MG DAILY DOSE)
     Route: 048
     Dates: start: 20150528, end: 20150924
  2. LYRICA [Concomitant]
     Active Substance: PREGABALIN
     Indication: ANALGESIC THERAPY
     Dosage: 300 MILLIGRAM, UNK
     Route: 048
     Dates: end: 20150729
  3. LYRICA [Concomitant]
     Active Substance: PREGABALIN
     Dosage: 150 MILLIGRAM
     Route: 048
     Dates: start: 20150730, end: 20150812
  4. MAGMITT [Concomitant]
     Active Substance: MAGNESIUM OXIDE
     Indication: PRODUCT USED FOR UNKNOWN INDICATION
     Dosage: 330 MILLIGRAM, UNK
     Route: 048
     Dates: end: 20151030
  5. AMITIZA [Concomitant]
     Active Substance: LUBIPROSTONE
     Indication: PRODUCT USED FOR UNKNOWN INDICATION
     Dosage: 24 MILLIGRAM, UNK
     Route: 048
     Dates: start: 20150813, end: 20150826
  6. METHADONE [Suspect]
     Active Substance: METHADONE HYDROCHLORIDE
     Indication: CANCER PAIN
     Dosage: 5MG, (15MG DAILY DOSE)
     Route: 048
     Dates: start: 20150302, end: 20150309
  7. LIVACT [Concomitant]
     Active Substance: AMINO ACIDS
     Indication: PRODUCT USED FOR UNKNOWN INDICATION
     Dosage: 12.45 GRAM, UNK
     Route: 048
     Dates: end: 20150812
  8. VOLTAREN [Concomitant]
     Active Substance: DICLOFENAC SODIUM
     Indication: PRODUCT USED FOR UNKNOWN INDICATION
     Dosage: 75 MILLIGRAM, UNK
     Route: 048
     Dates: end: 20151030
  9. RANMARK [Concomitant]
     Active Substance: DENOSUMAB
     Indication: ANALGESIC THERAPY
     Dosage: 120 MILLIGRAM, UNK
     Route: 058
     Dates: end: 20150911
  10. REBAMIPIDE [Concomitant]
     Active Substance: REBAMIPIDE
     Indication: PRODUCT USED FOR UNKNOWN INDICATION
     Dosage: 200 MILLIGRAM, UNK
     Route: 048
     Dates: end: 20150812
  11. AMITIZA [Concomitant]
     Active Substance: LUBIPROSTONE
     Dosage: 48 MILLIGRAM, UNK
     Route: 048
     Dates: start: 20150827, end: 20151030
  12. BARACLUDE [Concomitant]
     Active Substance: ENTECAVIR
     Indication: PRODUCT USED FOR UNKNOWN INDICATION
     Dosage: 0.5 MILLIGRAM, UNK
     Route: 048
     Dates: end: 20151030
  13. SENNOSIDE [Concomitant]
     Active Substance: SENNOSIDES
     Indication: PRODUCT USED FOR UNKNOWN INDICATION
     Dosage: 24 MILLIGRAM, UNK
     Route: 048
     Dates: start: 20150402, end: 20150812
  14. OXINORM (OXYCODONE HYDROCHLORIDE) [Suspect]
     Active Substance: OXYCODONE HYDROCHLORIDE
     Dosage: 10MG, P.R.N.
     Route: 048
     Dates: start: 20150312
  15. LANSOPRAZOLE. [Concomitant]
     Active Substance: LANSOPRAZOLE
     Indication: PRODUCT USED FOR UNKNOWN INDICATION
     Dosage: 15 MILLIGRAM, UNK
     Route: 048
     Dates: end: 20151030
  16. METHADONE [Suspect]
     Active Substance: METHADONE HYDROCHLORIDE
     Dosage: 10MG, (20MG DAILY DOSE)
     Route: 048
     Dates: start: 20150310, end: 20150527
  17. RINDERON [Concomitant]
     Indication: PRODUCT USED FOR UNKNOWN INDICATION
     Dosage: 1.0 MILLIGRAM, UNK
     Route: 048
     Dates: start: 20150528, end: 20150924
  18. OXINORM (OXYCODONE HYDROCHLORIDE) [Suspect]
     Active Substance: OXYCODONE HYDROCHLORIDE
     Indication: ANALGESIC THERAPY
     Dosage: 5MG, P.R.N.
     Route: 048
     Dates: start: 20150301, end: 20150311
  19. ALFAROL [Concomitant]
     Active Substance: ALFACALCIDOL
     Indication: PRODUCT USED FOR UNKNOWN INDICATION
     Dosage: 1MCG, UNK
     Route: 048
     Dates: end: 20151030

REACTIONS (2)
  - Hyperkalaemia [Recovered/Resolved]
  - Nausea [Recovered/Resolved]

NARRATIVE: CASE EVENT DATE: 20150314
